FAERS Safety Report 4657463-6 (Version None)
Quarter: 2005Q2

REPORT INFORMATION
  Report Type: 
  Country: None (occurrence: None)
  Receive Date: 20050510
  Receipt Date: 20050503
  Transmission Date: 20051028
  Serious: Yes (Other)
  Sender: FDA-Public Use
  Company Number: CA-JNJFOC-20050501566

PATIENT
  Age: 64 Year
  Sex: Female

DRUGS (1)
  1. TOPAMAX [Suspect]
     Indication: DYSTONIA
     Route: 049

REACTIONS (3)
  - FATIGUE [None]
  - HEART RATE INCREASED [None]
  - PARAESTHESIA [None]
